FAERS Safety Report 5341487-X (Version None)
Quarter: 2007Q2

REPORT INFORMATION
  Report Type: 
  Country: None (occurrence: None)
  Receive Date: 20070530
  Receipt Date: 20070521
  Transmission Date: 20071010
  Serious: Yes (Other)
  Sender: FDA-Public Use
  Company Number: 2007JP002234

PATIENT
  Age: 75 Year
  Sex: Male

DRUGS (4)
  1. VESICARE [Suspect]
     Indication: HYPERTONIC BLADDER
     Dosage: 5 MG, ORAL
     Route: 048
     Dates: start: 20070305, end: 20070313
  2. NERSET (CHIMAPHILA UMBELLATA EXTRACT, EQUISETUM ARVENSE EXTRACT, PULSA [Suspect]
     Dosage: 6 DF , ORAL
     Route: 048
     Dates: start: 20030101
  3. TAMSULOSIN HYDROCHLORIDE (TAMSULOSIN HYDROCHLORIDE) PER ORAL NOS [Suspect]
     Dosage: 0.2 MG, ORAL
     Route: 048
     Dates: start: 20030101
  4. MEDEPOLIN (ALPRAZOLAM) [Suspect]
     Dosage: 0.4 MG, ORAL
     Route: 048
     Dates: start: 20030101

REACTIONS (2)
  - EYELID OEDEMA [None]
  - FACIAL PALSY [None]
